FAERS Safety Report 11455382 (Version 1)
Quarter: 2015Q3

REPORT INFORMATION
  Report Type: Spontaneous
  Country: CH (occurrence: DE)
  Receive Date: 20150903
  Receipt Date: 20150903
  Transmission Date: 20151125
  Serious: Yes (Hospitalization)
  Sender: FDA-Public Use
  Company Number: CH-LPDUSPRD-20150664

PATIENT
  Age: 75 Year
  Sex: Female

DRUGS (5)
  1. CEFUROXIME SODIUM. [Concomitant]
     Active Substance: CEFUROXIME SODIUM
     Dosage: DOSE NOT PROVIDED
     Route: 065
  2. PARACETAMOL [Concomitant]
     Active Substance: ACETAMINOPHEN
     Dosage: DOSE NOT PROVIDED
     Route: 065
  3. FERINJECT [Suspect]
     Active Substance: FERRIC CARBOXYMALTOSE
     Dosage: 100 MG, 1 IN 1 TOTAL)
     Route: 040
     Dates: start: 20150320, end: 20150320
  4. VESICARE [Concomitant]
     Active Substance: SOLIFENACIN SUCCINATE
     Dosage: DOSE NOT PROVIDED
     Route: 048
  5. ORTHOTON [Concomitant]
     Dosage: DOSE NOT PROVIDED
     Route: 048

REACTIONS (7)
  - Urticaria [Unknown]
  - Skin reaction [Unknown]
  - Pruritus generalised [Unknown]
  - Influenza [Unknown]
  - Pyrexia [Unknown]
  - Myalgia [Unknown]
  - Angioedema [Unknown]

NARRATIVE: CASE EVENT DATE: 20150320
